FAERS Safety Report 8485558-8 (Version None)
Quarter: 2012Q3

REPORT INFORMATION
  Report Type: 
  Country: None (occurrence: None)
  Receive Date: 20120703
  Receipt Date: 20120623
  Transmission Date: 20120928
  Serious: Yes (Other)
  Sender: FDA-Public Use
  Company Number: CA-FRI-1000036772

PATIENT
  Sex: Male

DRUGS (2)
  1. METHADONE HCL [Concomitant]
     Dosage: DAILY DOSE NOT REPORTED
  2. ESCITALOPRAM [Suspect]
     Dosage: DAILY DOSE NOT REPORTED
     Route: 048

REACTIONS (1)
  - CARDIAC ARREST [None]
